FAERS Safety Report 5886176-8 (Version None)
Quarter: 2008Q3

REPORT INFORMATION
  Report Type: 
  Country: None (occurrence: None)
  Receive Date: 20080917
  Receipt Date: 20080910
  Transmission Date: 20090109
  Serious: Yes (Other)
  Sender: FDA-Public Use
  Company Number: CN-ASTRAZENECA-2008AP06918

PATIENT
  Age: 26 Year
  Sex: Male
  Weight: 60 kg

DRUGS (4)
  1. ROPIVACAINE [Suspect]
     Indication: ULNA FRACTURE
     Route: 065
  2. ROPIVACAINE [Suspect]
     Indication: HAND FRACTURE
     Route: 065
  3. PHENOBARBITAL SODIUM 100MG CAP [Suspect]
     Indication: SURGERY
     Route: 030
  4. ATROPINE [Suspect]
     Indication: SURGERY
     Route: 030

REACTIONS (1)
  - DRUG HYPERSENSITIVITY [None]
